FAERS Safety Report 8922804 (Version 2)
Quarter: 2012Q4

REPORT INFORMATION
  Report Type: 
  Country: US (occurrence: US)
  Receive Date: 20121123
  Receipt Date: 20121128
  Transmission Date: 20130627
  Serious: Yes (Hospitalization, Other)
  Sender: FDA-Public Use
  Company Number: PHHY2012US105041

PATIENT
  Age: 40 Year
  Sex: Female

DRUGS (1)
  1. CITALOPRAM [Suspect]
     Indication: DEPRESSION
     Dosage: 40 mg, BID

REACTIONS (11)
  - Long QT syndrome congenital [Unknown]
  - Electrocardiogram QT prolonged [Recovered/Resolved]
  - Syncope [Recovered/Resolved]
  - Palpitations [Unknown]
  - Dizziness [Unknown]
  - Torsade de pointes [Unknown]
  - Arrhythmia [Unknown]
  - Condition aggravated [Unknown]
  - Loss of consciousness [Unknown]
  - Fall [Unknown]
  - Laceration [Unknown]
